FAERS Safety Report 8560265 (Version 2)
Quarter: 2022Q1

REPORT INFORMATION
  Report Type: Report from Study
  Country: US (occurrence: US)
  Receive Date: 20120514
  Receipt Date: 20220206
  Transmission Date: 20220423
  Serious: Yes (Hospitalization, Other)
  Sender: FDA-Public Use
  Company Number: US-SANOFI-AVENTIS-2012SA029410

PATIENT
  Age: 46 Year
  Sex: Female
  Weight: 109 kg

DRUGS (4)
  1. HYDROXYCHLOROQUINE SULFATE [Suspect]
     Active Substance: HYDROXYCHLOROQUINE SULFATE
     Indication: Neoplasm
     Dosage: 200 MG, QCY; 200 MG, BID (PLAQUENIL) 4-42 (CYCLE1) AND 1-42 (CYCLE2)
     Route: 048
     Dates: start: 20120206
  2. HYDROXYCHLOROQUINE SULFATE [Suspect]
     Active Substance: HYDROXYCHLOROQUINE SULFATE
     Dosage: 8000 MG, QCY
     Route: 048
     Dates: start: 20120229
  3. SUNITINIB [Suspect]
     Active Substance: SUNITINIB
     Indication: Neoplasm
     Dosage: 50 MG,QCY; ON DAYS 1-28
     Route: 048
     Dates: start: 20120206
  4. SUNITINIB [Suspect]
     Active Substance: SUNITINIB
     Dosage: 1050 MG,QCY
     Route: 048
     Dates: start: 20120226

REACTIONS (6)
  - Skin ulcer [Not Recovered/Not Resolved]
  - Fatigue [Not Recovered/Not Resolved]
  - Skin infection [Not Recovered/Not Resolved]
  - Decreased appetite [Not Recovered/Not Resolved]
  - Taste disorder [Not Recovered/Not Resolved]
  - Colonic fistula [Not Recovered/Not Resolved]

NARRATIVE: CASE EVENT DATE: 20120227
